FAERS Safety Report 8996819 (Version 1)
Quarter: 2012Q4

REPORT INFORMATION
  Report Type: Spontaneous
  Country: US (occurrence: None)
  Receive Date: 20121228
  Receipt Date: 20121228
  Transmission Date: 20130627
  Serious: Yes (Other)
  Sender: FDA-Public Use
  Company Number: None

PATIENT
  Sex: Male
  Weight: 81.65 kg

DRUGS (1)
  1. ADVAIR DISKUS [Suspect]
     Dosage: 1 bREATH MORN + NIGHT  TWICE A DAY
OCT  NOV + DEC 2012

REACTIONS (7)
  - Cough [None]
  - Productive cough [None]
  - Wheezing [None]
  - Nervousness [None]
  - Dyspnoea [None]
  - Candidiasis [None]
  - Asthenia [None]
